FAERS Safety Report 10515003 (Version 16)
Quarter: 2015Q3

REPORT INFORMATION
  Report Type: Report from Study
  Country: CA (occurrence: CA)
  Receive Date: 20141013
  Receipt Date: 20150713
  Transmission Date: 20151125
  Serious: Yes (Hospitalization, Other)
  Sender: FDA-Public Use
  Company Number: PHHY2014CA130751

PATIENT
  Age: 88 Year
  Sex: Male

DRUGS (4)
  1. CORDARONE [Concomitant]
     Active Substance: AMIODARONE HYDROCHLORIDE
     Indication: PRODUCT USED FOR UNKNOWN INDICATION
     Dosage: 1 DF, UNK
     Route: 065
  2. SYNTHROID [Concomitant]
     Active Substance: LEVOTHYROXINE SODIUM
     Indication: PRODUCT USED FOR UNKNOWN INDICATION
     Dosage: 0.25 MG
     Route: 065
  3. SANDOSTATIN LAR DEPOT [Suspect]
     Active Substance: OCTREOTIDE ACETATE
     Indication: GASTROINTESTINAL ANGIODYSPLASIA
     Dosage: 30 MG, ONCE A MONTH (QMO)
     Route: 030
     Dates: start: 20140905
  4. CORDARONE [Concomitant]
     Active Substance: AMIODARONE HYDROCHLORIDE
     Dosage: 200 MG, BID
     Route: 065

REACTIONS (21)
  - Pulmonary oedema [Unknown]
  - Blood pressure decreased [Unknown]
  - Injection site scab [Unknown]
  - Device malfunction [Recovered/Resolved]
  - Malaise [Unknown]
  - Coronary artery occlusion [Unknown]
  - Flatulence [Unknown]
  - Pneumonia [Unknown]
  - Dyspnoea [Recovered/Resolved]
  - Post procedural haemorrhage [Recovered/Resolved]
  - Pleural effusion [Unknown]
  - Fatigue [Unknown]
  - Dyspnoea exertional [Unknown]
  - Weight decreased [Unknown]
  - Heart rate decreased [Unknown]
  - Asthenia [Unknown]
  - Blood pressure systolic increased [Unknown]
  - Oedema [Unknown]
  - Injection site haemorrhage [Recovered/Resolved]
  - Dizziness [Unknown]
  - Off label use [Unknown]

NARRATIVE: CASE EVENT DATE: 2014
